FAERS Safety Report 5661226-2 (Version None)
Quarter: 2008Q1

REPORT INFORMATION
  Report Type: 
  Country: None (occurrence: None)
  Receive Date: 20080312
  Receipt Date: 20080304
  Transmission Date: 20080703
  Serious: Yes (Hospitalization)
  Sender: FDA-Public Use
  Company Number: A0713294A

PATIENT
  Age: 41 Year
  Sex: Female

DRUGS (4)
  1. WELLBUTRIN XL [Suspect]
     Dosage: 300MG PER DAY
     Route: 048
     Dates: start: 20030101, end: 20080201
  2. BUPROPION HYDROCHLORIDE [Suspect]
     Route: 048
     Dates: start: 20080221
  3. NICOTINE [Concomitant]
  4. LOESTRIN 1.5/30 [Concomitant]

REACTIONS (6)
  - NICOTINE DEPENDENCE [None]
  - PHARYNGOLARYNGEAL PAIN [None]
  - STOMACH DISCOMFORT [None]
  - SUICIDAL IDEATION [None]
  - TREMOR [None]
  - VISION BLURRED [None]
